FAERS Safety Report 5041539-8 (Version None)
Quarter: 2006Q2

REPORT INFORMATION
  Report Type: 
  Country: None (occurrence: None)
  Receive Date: 20060628
  Receipt Date: 20060615
  Transmission Date: 20061013
  Serious: Yes (Other)
  Sender: FDA-Public Use
  Company Number: B0428121A

PATIENT
  Age: 17 Year
  Sex: Female

DRUGS (6)
  1. LITHIUM CARBONATE [Suspect]
     Indication: MANIA
  2. PAXIL [Suspect]
  3. OLANZAPINE [Concomitant]
  4. QUETIAPINE FUMARATE [Concomitant]
  5. LAMOTRIGINE [Concomitant]
  6. VALPROATE SODIUM [Concomitant]

REACTIONS (8)
  - APATHY [None]
  - GRANDIOSITY [None]
  - HYPOTHYROIDISM [None]
  - INSOMNIA [None]
  - MANIA [None]
  - SUICIDAL IDEATION [None]
  - TACHYCARDIA [None]
  - THERAPY NON-RESPONDER [None]
